FAERS Safety Report 16915639 (Version 1)
Quarter: 2019Q4

REPORT INFORMATION
  Report Type: Spontaneous
  Country: US (occurrence: US)
  Receive Date: 20191012
  Receipt Date: 20191012
  Transmission Date: 20200122
  Serious: Yes (Disabling, Other)
  Sender: FDA-Public Use
  Company Number: None

PATIENT
  Age: 59 Year
  Sex: Female
  Weight: 61.2 kg

DRUGS (2)
  1. OXYCODONE-ACETAMINOPHEN 5-325 GENERIC FOR PERCOCET [Suspect]
     Active Substance: ACETAMINOPHEN\OXYCODONE HYDROCHLORIDE
     Indication: PAIN
     Dosage: ?          QUANTITY:56 TABLET(S);?
     Route: 048
     Dates: start: 20191005, end: 20191012
  2. CELEXA [Concomitant]
     Active Substance: CITALOPRAM HYDROBROMIDE

REACTIONS (6)
  - Diarrhoea [None]
  - Malaise [None]
  - Inadequate analgesia [None]
  - Nausea [None]
  - Vomiting [None]
  - Product advertising issue [None]

NARRATIVE: CASE EVENT DATE: 20191005
